FAERS Safety Report 19133413 (Version 1)
Quarter: 2021Q2

REPORT INFORMATION
  Report Type: Spontaneous
  Country: CN (occurrence: CN)
  Receive Date: 20210414
  Receipt Date: 20210414
  Transmission Date: 20210717
  Serious: Yes (Hospitalization, Other)
  Sender: FDA-Public Use
  Company Number: CN-GLAXOSMITHKLINE-CN2021APC081184

PATIENT
  Age: 23 Year
  Sex: Male
  Weight: 67.5 kg

DRUGS (3)
  1. LAMICTAL [Suspect]
     Active Substance: LAMOTRIGINE
     Indication: SYMPTOMATIC TREATMENT
     Dosage: 25 MG, BID
     Route: 048
     Dates: start: 20210201, end: 20210207
  2. DEPAKINE [Suspect]
     Active Substance: VALPROATE SODIUM
     Indication: SYMPTOMATIC TREATMENT
     Dosage: 0.5 G, BID
     Route: 048
     Dates: start: 20210207, end: 20210311
  3. LAMICTAL [Suspect]
     Active Substance: LAMOTRIGINE
     Dosage: 50 MG, BID
     Route: 048
     Dates: start: 20210213, end: 20210223

REACTIONS (8)
  - Rash pruritic [Recovered/Resolved]
  - Headache [Recovered/Resolved]
  - Rash [Recovered/Resolved]
  - Pruritus [Recovered/Resolved]
  - Condition aggravated [Recovering/Resolving]
  - Epilepsy [Recovered/Resolved]
  - Pyrexia [Recovered/Resolved]
  - Rash erythematous [Recovering/Resolving]

NARRATIVE: CASE EVENT DATE: 20210213
